FAERS Safety Report 9322064 (Version 1)
Quarter: 2013Q2

REPORT INFORMATION
  Report Type: Spontaneous
  Country: US (occurrence: None)
  Receive Date: 20130528
  Receipt Date: 20130528
  Transmission Date: 20140414
  Serious: Yes (Other)
  Sender: FDA-Public Use
  Company Number: 2013P1006213

PATIENT
  Age: 73 Year
  Sex: Female

DRUGS (1)
  1. HEPARIN [Suspect]
     Indication: ANTICOAGULANT THERAPY

REACTIONS (8)
  - Sepsis [None]
  - Shock [None]
  - Pyrexia [None]
  - Abdominal pain [None]
  - Mental status changes [None]
  - Heparin-induced thrombocytopenia [None]
  - Adrenal haemorrhage [None]
  - Venous thrombosis [None]
